FAERS Safety Report 8561608-5 (Version None)
Quarter: 2012Q3

REPORT INFORMATION
  Report Type: 
  Country: None (occurrence: None)
  Receive Date: 20120802
  Receipt Date: 20120716
  Transmission Date: 20120928
  Serious: No
  Sender: FDA-Public Use
  Company Number: US-ASTRAZENECA-2012SE49433

PATIENT
  Sex: Male

DRUGS (1)
  1. SYMBICORT [Suspect]
     Dosage: UNKNOWN
     Route: 055

REACTIONS (1)
  - DIABETES MELLITUS [None]
